FAERS Safety Report 5104504-8 (Version None)
Quarter: 2006Q3

REPORT INFORMATION
  Report Type: 
  Country: None (occurrence: None)
  Receive Date: 20060731
  Receipt Date: 20060518
  Transmission Date: 20061208
  Serious: Yes (Other)
  Sender: FDA-Public Use
  Company Number: JAUSA32568

PATIENT
  Age: 31 Year
  Sex: Male
  Weight: 111.1313 kg

DRUGS (3)
  1. RISPERDAL [Suspect]
     Indication: DEPRESSION
     Dosage: 2 MG, 1 IN 1 DAY, ORAL
     Route: 048
     Dates: start: 19960301
  2. KLONOPIN (CLONAZEPAM) UNSPECIFIED [Concomitant]
  3. GLUCOTROL XL (GLIPIZIDE) TABLETS [Concomitant]

REACTIONS (3)
  - BLOOD PRESSURE INCREASED [None]
  - DIABETES MELLITUS [None]
  - WEIGHT INCREASED [None]
